APPROVED DRUG PRODUCT: CLINDAMYCIN PALMITATE HYDROCHLORIDE
Active Ingredient: CLINDAMYCIN PALMITATE HYDROCHLORIDE
Strength: EQ 75MG BASE/5ML
Dosage Form/Route: FOR SOLUTION;ORAL
Application: A202409 | Product #001 | TE Code: AA
Applicant: AUROBINDO PHARMA LTD
Approved: Apr 30, 2013 | RLD: No | RS: No | Type: RX